FAERS Safety Report 10470534 (Version 16)
Quarter: 2016Q1

REPORT INFORMATION
  Report Type: Report from Study
  Country: FR (occurrence: FR)
  Receive Date: 20140923
  Receipt Date: 20160112
  Transmission Date: 20160525
  Serious: Yes (Hospitalization)
  Sender: FDA-Public Use
  Company Number: FR-009507513-1406FRA012230

PATIENT
  Age: 79 Year
  Sex: Female
  Weight: 75.5 kg

DRUGS (11)
  1. PEMBROLIZUMAB. [Suspect]
     Active Substance: PEMBROLIZUMAB
     Dosage: 10 MG/KG, QOW
     Route: 042
     Dates: start: 20140709
  2. ATENOLOL. [Concomitant]
     Active Substance: ATENOLOL
     Indication: HYPERTENSION
     Dosage: 50 MG, QD
     Route: 048
     Dates: start: 20140506, end: 20140618
  3. DOLIPRANE [Concomitant]
     Active Substance: ACETAMINOPHEN
     Indication: SCIATICA
     Dosage: TOTAL DAILY DOSE: 1000 MG, TID
     Route: 048
     Dates: start: 20140519, end: 201504
  4. DIFFU-K [Concomitant]
     Active Substance: POTASSIUM CHLORIDE
     Indication: HYPOKALAEMIA
     Dosage: TOTAL DAILY DOSE: 1800 MG, BID
     Route: 048
     Dates: start: 20140524, end: 20140527
  5. PEMBROLIZUMAB. [Suspect]
     Active Substance: PEMBROLIZUMAB
     Indication: MALIGNANT MELANOMA
     Dosage: 10 MG/KG, QOW
     Route: 042
     Dates: start: 20140115, end: 20140521
  6. PEMBROLIZUMAB. [Suspect]
     Active Substance: PEMBROLIZUMAB
     Dosage: 10 MG/KG, QOW
     Route: 042
     Dates: start: 20140604, end: 20140604
  7. GELTIM LP [Concomitant]
     Active Substance: TIMOLOL MALEATE
     Indication: CATARACT
     Dosage: TOTAL DAILY DOSE: 1 DROP, BID
     Route: 047
     Dates: start: 201306, end: 20150312
  8. PROFENID [Concomitant]
     Active Substance: KETOPROFEN
     Indication: SCIATICA
     Dosage: 100 MG, QD
     Route: 048
     Dates: start: 20140521, end: 20140619
  9. DUPHALAC [Concomitant]
     Active Substance: LACTULOSE
     Indication: CONSTIPATION
     Dosage: 1 PACKET, QD
     Route: 048
     Dates: start: 20140526, end: 20140529
  10. INEXIUM (ESOMEPRAZOLE MAGNESIUM) [Concomitant]
     Active Substance: ESOMEPRAZOLE MAGNESIUM
     Indication: PROPHYLAXIS
     Dosage: 20 MG, QD
     Route: 048
     Dates: start: 20140521, end: 20150121
  11. FRAGMINE [Concomitant]
     Active Substance: DALTEPARIN SODIUM
     Indication: THROMBOSIS PROPHYLAXIS
     Dosage: 2500 U, QD
     Route: 042
     Dates: start: 20140523, end: 20140527

REACTIONS (1)
  - Blood corticotrophin decreased [Not Recovered/Not Resolved]

NARRATIVE: CASE EVENT DATE: 20140610
